FAERS Safety Report 7600110-1 (Version None)
Quarter: 2011Q3

REPORT INFORMATION
  Report Type: 
  Country: None (occurrence: None)
  Receive Date: 20110711
  Receipt Date: 20110702
  Transmission Date: 20111222
  Serious: Yes (Other)
  Sender: FDA-Public Use
  Company Number: ES-JNJFOC-20110600890

PATIENT
  Age: 51 Year
  Sex: Female

DRUGS (3)
  1. LEVOFLOXACIN [Suspect]
     Indication: PLEURAL EFFUSION
     Route: 048
  2. AMOXICILLIN AND CLAVULANATE POTASSIUM [Suspect]
     Indication: PLEURAL EFFUSION
     Route: 042
  3. CEFTRIAXONE [Suspect]
     Indication: PLEURAL EFFUSION
     Route: 042

REACTIONS (2)
  - INCORRECT DRUG ADMINISTRATION DURATION [None]
  - HEPATITIS CHOLESTATIC [None]
